FAERS Safety Report 11234796 (Version 2)
Quarter: 2015Q3

REPORT INFORMATION
  Report Type: Spontaneous
  Country: US (occurrence: None)
  Receive Date: 20150630
  Receipt Date: 20150914
  Transmission Date: 20151125
  Serious: Yes (Hospitalization)
  Sender: FDA-Public Use
  Company Number: US2015GSK092059

PATIENT
  Sex: Female

DRUGS (5)
  1. ECOTRIN [Suspect]
     Active Substance: ASPIRIN
     Route: 048
  2. ATORVASTATIN CALCIUM. [Suspect]
     Active Substance: ATORVASTATIN CALCIUM
     Dates: start: 20150510
  3. VITAMIN D3 [Suspect]
     Active Substance: CHOLECALCIFEROL
  4. TUMS EX [Suspect]
     Active Substance: CALCIUM CARBONATE
     Route: 048
  5. ESTRADIOL. [Suspect]
     Active Substance: ESTRADIOL
     Dates: start: 2015

REACTIONS (2)
  - Pain in extremity [None]
  - Pain [None]
